FAERS Safety Report 23058707 (Version 1)
Quarter: 2023Q4

REPORT INFORMATION
  Report Type: Spontaneous
  Country: US (occurrence: US)
  Receive Date: 20231012
  Receipt Date: 20231012
  Transmission Date: 20240110
  Serious: Yes (Other)
  Sender: FDA-Public Use
  Company Number: US-Shilpa Medicare Limited-SML-US-2023-01404

PATIENT
  Age: 7 Decade
  Sex: Female

DRUGS (2)
  1. GEMCITABINE [Suspect]
     Active Substance: GEMCITABINE
     Indication: Pelvic neoplasm
     Route: 065
  2. CARBOPLATIN [Suspect]
     Active Substance: CARBOPLATIN
     Indication: Pelvic neoplasm
     Route: 065

REACTIONS (5)
  - Chest pain [Unknown]
  - Malignant pleural effusion [Unknown]
  - Metastases to lung [Unknown]
  - Drug ineffective [Unknown]
  - Dyspnoea [Unknown]
